FAERS Safety Report 9769346 (Version 1)
Quarter: 2013Q4

REPORT INFORMATION
  Report Type: Spontaneous
  Country: US (occurrence: US)
  Receive Date: 20131218
  Receipt Date: 20131218
  Transmission Date: 20140711
  Serious: Yes (Other)
  Sender: FDA-Public Use
  Company Number: US-ROXANE LABORATORIES, INC.-2013-RO-01959RO

PATIENT
  Age: 63 Year
  Sex: Male

DRUGS (11)
  1. CLOPIDOGREL [Suspect]
     Dosage: 75 MG
  2. ASPIRIN [Suspect]
     Dosage: 325 MG
  3. VITAMIN E [Suspect]
     Indication: VITAMIN SUPPLEMENTATION
     Dosage: 1000 U
  4. FISH OIL [Suspect]
     Indication: SUPPLEMENTATION THERAPY
  5. CLONAZEPAM [Concomitant]
     Dosage: 1 MG
  6. GEMFIBROZIL [Concomitant]
     Dosage: 1200 MG
  7. METOPROLOL [Concomitant]
     Dosage: 25 MG
  8. NIACIN [Concomitant]
     Dosage: 500 MG
  9. RANITIDINE [Concomitant]
     Dosage: 300 MG
  10. ROSUVASTATIN [Concomitant]
     Dosage: 10 MG
  11. VALSARTAN [Concomitant]
     Dosage: 160 MG

REACTIONS (1)
  - Periorbital haemorrhage [Recovered/Resolved]
